FAERS Safety Report 4660264-6 (Version None)
Quarter: 2005Q2

REPORT INFORMATION
  Report Type: 
  Country: None (occurrence: None)
  Receive Date: 20050512
  Receipt Date: 20050428
  Transmission Date: 20051028
  Serious: Yes (Hospitalization, Other)
  Sender: FDA-Public Use
  Company Number: US-GLAXOSMITHKLINE-A0556125A

PATIENT
  Age: 46 Year
  Sex: Female
  Weight: 68.2 kg

DRUGS (5)
  1. STANBACK HEADACHE POWDER [Suspect]
     Indication: PAIN
     Route: 048
     Dates: start: 19620101
  2. CARDIZEM CD [Concomitant]
     Indication: CARDIAC DISORDER
     Route: 048
  3. ENALAPRIL MALEATE [Concomitant]
     Indication: CARDIAC DISORDER
     Dosage: 10MG PER DAY
     Route: 048
  4. TRIAMTEREN [Concomitant]
     Indication: DIURETIC THERAPY
     Dosage: 25MG PER DAY
     Route: 048
  5. CLONOPIN [Concomitant]
     Indication: NERVOUSNESS
     Dosage: .5MG THREE TIMES PER DAY
     Route: 048

REACTIONS (8)
  - ARTHRITIS [None]
  - BACK PAIN [None]
  - CORONARY ARTERY OCCLUSION [None]
  - DRUG ABUSER [None]
  - FIBROMYALGIA [None]
  - MALAISE [None]
  - PAIN [None]
  - PYREXIA [None]
